FAERS Safety Report 14212706 (Version 1)
Quarter: 2017Q4

REPORT INFORMATION
  Report Type: Other
  Country: CA (occurrence: CA)
  Receive Date: 20171122
  Receipt Date: 20171122
  Transmission Date: 20180321
  Serious: Yes (Death, Hospitalization)
  Sender: FDA-Public Use
  Company Number: CA-APOTEX-2017AP021391

PATIENT
  Age: 91 Year
  Sex: Male

DRUGS (1)
  1. APO-FENTANYL MATRIX [Suspect]
     Active Substance: FENTANYL
     Indication: ARTHRALGIA
     Dosage: UNK, 1 EVERY 72 HOURS
     Route: 062

REACTIONS (6)
  - Overdose [Fatal]
  - Decreased appetite [Fatal]
  - Somnolence [Fatal]
  - Pyrexia [Fatal]
  - Death [Fatal]
  - Loss of consciousness [Fatal]
